FAERS Safety Report 6998384-3 (Version None)
Quarter: 2010Q3

REPORT INFORMATION
  Report Type: 
  Country: None (occurrence: None)
  Receive Date: 20100920
  Receipt Date: 20100908
  Transmission Date: 20110219
  Serious: Yes (Other)
  Sender: FDA-Public Use
  Company Number: AU-JNJFOC-20100902882

PATIENT
  Sex: Male

DRUGS (2)
  1. REMICADE [Suspect]
     Indication: RHEUMATOID ARTHRITIS
     Route: 042
  2. PERINDOPRIL ERBUMINE [Concomitant]

REACTIONS (3)
  - CONVULSION [None]
  - PLEURAL EFFUSION [None]
  - SUBDURAL HAEMATOMA [None]
